FAERS Safety Report 7255865-5 (Version None)
Quarter: 2011Q1

REPORT INFORMATION
  Report Type: 
  Country: None (occurrence: None)
  Receive Date: 20110129
  Receipt Date: 20100506
  Transmission Date: 20110831
  Serious: No
  Sender: FDA-Public Use
  Company Number: US-ABBOTT-10P-163-0637643-00

PATIENT
  Sex: Female
  Weight: 68.1 kg

DRUGS (4)
  1. CELEBREX [Concomitant]
     Indication: PRODUCT USED FOR UNKNOWN INDICATION
  2. HUMIRA [Suspect]
     Indication: RHEUMATOID ARTHRITIS
     Dates: start: 20081001
  3. ON OTHER MEDICATIONS-DECLINED TO REPORT [Concomitant]
     Indication: PRODUCT USED FOR UNKNOWN INDICATION
  4. KAPIDEX [Concomitant]
     Indication: PRODUCT USED FOR UNKNOWN INDICATION

REACTIONS (4)
  - PRODUCT CONTAMINATION [None]
  - ARTHRALGIA [None]
  - INCORRECT DOSE ADMINISTERED [None]
  - BACK PAIN [None]
